FAERS Safety Report 21064479 (Version 1)
Quarter: 2022Q3

REPORT INFORMATION
  Report Type: Report from Study
  Country: US (occurrence: US)
  Receive Date: 20220711
  Receipt Date: 20220711
  Transmission Date: 20221026
  Serious: Yes (Death)
  Sender: FDA-Public Use
  Company Number: US-JNJFOC-20220709981

PATIENT
  Age: 7 Year
  Sex: Male

DRUGS (2)
  1. TYLENOL EXTRA STRENGTH [Suspect]
     Active Substance: ACETAMINOPHEN
     Indication: Product used for unknown indication
     Route: 065
     Dates: start: 2013
  2. VALPROIC ACID [Suspect]
     Active Substance: VALPROIC ACID
     Indication: Product used for unknown indication
     Route: 065
     Dates: start: 2013

REACTIONS (5)
  - Toxicity to various agents [Fatal]
  - Medication error [Fatal]
  - Ischaemic hepatitis [Fatal]
  - Hypoxia [Fatal]
  - Hypertension [Fatal]

NARRATIVE: CASE EVENT DATE: 20130101
